FAERS Safety Report 22010654 (Version 2)
Quarter: 2023Q2

REPORT INFORMATION
  Report Type: Spontaneous
  Country: CA (occurrence: CA)
  Receive Date: 20230220
  Receipt Date: 20230414
  Transmission Date: 20230721
  Serious: Yes (Hospitalization)
  Sender: FDA-Public Use
  Company Number: CA-VIIV HEALTHCARE LIMITED-CA2023019775

PATIENT
  Age: 57 Year
  Sex: Male

DRUGS (2)
  1. RILPIVIRINE [Suspect]
     Active Substance: RILPIVIRINE
     Indication: HIV infection
     Dosage: UNK UNK, Z 600MG/3ML CABOTEGRAVIR, 900MG/3ML RILPIVIRINE EVERY 2 MONTHS
     Route: 030
     Dates: start: 20230106
  2. CABOTEGRAVIR [Suspect]
     Active Substance: CABOTEGRAVIR
     Indication: HIV infection
     Dosage: UNK UNK, Z 600MG/3ML CABOTEGRAVIR, 900MG/3ML RILPIVIRINE EVERY 2 MONTHS
     Route: 030
     Dates: start: 20230106

REACTIONS (3)
  - Psoriasis [Not Recovered/Not Resolved]
  - Hospitalisation [Unknown]
  - Rash [Unknown]

NARRATIVE: CASE EVENT DATE: 20230101
